FAERS Safety Report 14821133 (Version 1)
Quarter: 2018Q2

REPORT INFORMATION
  Report Type: Spontaneous
  Country: US (occurrence: US)
  Receive Date: 20180427
  Receipt Date: 20180427
  Transmission Date: 20180711
  Serious: No
  Sender: FDA-Public Use
  Company Number: US-ASTRAZENECA-2018SE41182

PATIENT
  Age: 59 Year
  Sex: Female
  Weight: 121 kg

DRUGS (14)
  1. LANTUS SOLOSTAR [Concomitant]
     Active Substance: INSULIN GLARGINE
     Route: 058
  2. PROTONIX [Concomitant]
     Active Substance: PANTOPRAZOLE SODIUM
  3. XARELTO [Concomitant]
     Active Substance: RIVAROXABAN
  4. ATORVASTATIN [Concomitant]
     Active Substance: ATORVASTATIN
  5. LOPID [Concomitant]
     Active Substance: GEMFIBROZIL
  6. POTASSIUM [Concomitant]
     Active Substance: POTASSIUM
  7. VITAMIN B NOS [Concomitant]
     Active Substance: VITAMIN B
  8. LYNPARZA [Suspect]
     Active Substance: OLAPARIB
     Indication: METASTASES TO PERITONEUM
     Route: 048
     Dates: start: 201801
  9. ESCITALOPRAM [Concomitant]
     Active Substance: ESCITALOPRAM OXALATE
  10. HUMALOG [Concomitant]
     Active Substance: INSULIN LISPRO
     Route: 058
  11. METFORMIN [Concomitant]
     Active Substance: METFORMIN HYDROCHLORIDE
  12. TRAZODONE [Concomitant]
     Active Substance: TRAZODONE HYDROCHLORIDE
  13. ALPRAZOLAM. [Concomitant]
     Active Substance: ALPRAZOLAM
  14. ONDANSETRON [Concomitant]
     Active Substance: ONDANSETRON

REACTIONS (3)
  - Diarrhoea [Unknown]
  - Underdose [Unknown]
  - Medication residue present [Unknown]
